FAERS Safety Report 6522398-0 (Version None)
Quarter: 2009Q4

REPORT INFORMATION
  Report Type: 
  Country: None (occurrence: None)
  Receive Date: 20091230
  Receipt Date: 20091217
  Transmission Date: 20100525
  Serious: Yes (Hospitalization)
  Sender: FDA-Public Use
  Company Number: FR-ROCHE-661818

PATIENT
  Sex: Female
  Weight: 58 kg

DRUGS (2)
  1. BONIVA [Suspect]
     Indication: OSTEOPOROSIS
     Dosage: FORM:COATED TABLET
     Route: 048
     Dates: start: 20090201, end: 20090716
  2. LANZOR [Concomitant]
     Indication: PROPHYLAXIS

REACTIONS (5)
  - ABDOMINAL PAIN UPPER [None]
  - GASTRIC ULCER HAEMORRHAGE [None]
  - MELAENA [None]
  - NORMOCHROMIC NORMOCYTIC ANAEMIA [None]
  - VITAMIN D DEFICIENCY [None]
